FAERS Safety Report 9801500 (Version 1)
Quarter: 2014Q1

REPORT INFORMATION
  Report Type: Spontaneous
  Country: IT (occurrence: IT)
  Receive Date: 20140107
  Receipt Date: 20140107
  Transmission Date: 20141002
  Serious: Yes (Hospitalization)
  Sender: FDA-Public Use
  Company Number: IT-BAYER-2013-159234

PATIENT
  Age: 56 Year
  Sex: Female

DRUGS (3)
  1. CIPROXIN 500 MG FILM-COATED TABLETS [Suspect]
     Dosage: 500 MG, ONCE
     Route: 048
     Dates: start: 20131028, end: 20131028
  2. TAVANIC [Suspect]
     Indication: CYSTITIS
     Dosage: DAILY DOSE 500 MG
     Route: 048
     Dates: start: 20131021, end: 20131025
  3. TACHIPIRINA [Suspect]
     Indication: PYREXIA
     Dosage: UNK
     Route: 048
     Dates: start: 20131028, end: 20131029

REACTIONS (4)
  - Tongue eruption [Recovering/Resolving]
  - Oral mucosa erosion [Recovering/Resolving]
  - Lip erosion [Recovering/Resolving]
  - Adverse drug reaction [Recovering/Resolving]
